FAERS Safety Report 13043255 (Version 5)
Quarter: 2018Q2

REPORT INFORMATION
  Report Type: Spontaneous
  Country: IT (occurrence: IT)
  Receive Date: 20161219
  Receipt Date: 20180417
  Transmission Date: 20180711
  Serious: Yes (Death, Hospitalization)
  Sender: FDA-Public Use
  Company Number: PHHY2016IT162658

PATIENT
  Age: 80 Year
  Sex: Female

DRUGS (4)
  1. MEDROL [Concomitant]
     Active Substance: METHYLPREDNISOLONE
     Indication: ARTHRITIS
     Dosage: 4 MG, UNK
     Route: 048
     Dates: start: 20120330
  2. CARDICOR [Concomitant]
     Active Substance: BISOPROLOL
     Indication: CARDIAC FAILURE
     Dosage: 1 DF, UNK
     Route: 048
     Dates: start: 20120424
  3. DICLOFENAC [Suspect]
     Active Substance: DICLOFENAC
     Indication: ARTHRALGIA
     Dosage: 75 MG, QD
     Route: 030
     Dates: start: 20161111, end: 20161116
  4. METHOTREXATE. [Concomitant]
     Active Substance: METHOTREXATE
     Indication: PSORIATIC ARTHROPATHY
     Dosage: 1 DF, UNK (15 MG/2 ML SOLUTION FOR INJECTION)
     Route: 058

REACTIONS (3)
  - Haemoglobin decreased [Unknown]
  - Cardiac disorder [Fatal]
  - Peptic ulcer haemorrhage [Not Recovered/Not Resolved]

NARRATIVE: CASE EVENT DATE: 20161117
